FAERS Safety Report 5850535-X (Version None)
Quarter: 2008Q3

REPORT INFORMATION
  Report Type: 
  Country: None (occurrence: None)
  Receive Date: 20080820
  Receipt Date: 20080811
  Transmission Date: 20090109
  Serious: Yes (Death, Life-Threatening, Other)
  Sender: FDA-Public Use
  Company Number: GB-JNJFOC-20080704479

PATIENT
  Age: 54 Year
  Sex: Female
  Weight: 66 kg

DRUGS (10)
  1. REMICADE [Suspect]
     Indication: RHEUMATOID ARTHRITIS
     Route: 042
  2. NAPROSYN [Concomitant]
  3. METHOTREXATE SODIUM [Concomitant]
  4. DIHYDROCODEINE BITARTRATE INJ [Concomitant]
  5. FERROUS SULFATE TAB [Concomitant]
  6. ZOCOR [Concomitant]
  7. HYDROXYCHLOROQUINE [Concomitant]
  8. INDOMETHACIN [Concomitant]
  9. LEFLUNOMIDE [Concomitant]
  10. LANSOPRAZOLE [Concomitant]

REACTIONS (2)
  - MULTI-ORGAN FAILURE [None]
  - PNEUMONIA [None]
